FAERS Safety Report 23149324 (Version 1)
Quarter: 2023Q4

REPORT INFORMATION
  Report Type: Report from Study
  Country: US (occurrence: US)
  Receive Date: 20231106
  Receipt Date: 20231106
  Transmission Date: 20240110
  Serious: Yes (Hospitalization, Other)
  Sender: FDA-Public Use
  Company Number: US-ABBVIE-5475473

PATIENT
  Age: 62 Year
  Sex: Female

DRUGS (2)
  1. CREON [Suspect]
     Active Substance: PANCRELIPASE AMYLASE\PANCRELIPASE LIPASE\PANCRELIPASE PROTEASE
     Indication: Product used for unknown indication
     Route: 048
     Dates: start: 2014
  2. CREON [Suspect]
     Active Substance: PANCRELIPASE AMYLASE\PANCRELIPASE LIPASE\PANCRELIPASE PROTEASE
     Indication: Product used for unknown indication
     Route: 048
     Dates: start: 202302

REACTIONS (5)
  - Pneumonia aspiration [Recovered/Resolved]
  - Pancreatitis acute [Recovered/Resolved]
  - Biliary tract operation [Recovered/Resolved]
  - Screaming [Unknown]
  - Pain [Unknown]

NARRATIVE: CASE EVENT DATE: 20221101
